FAERS Safety Report 8155415-5 (Version None)
Quarter: 2012Q1

REPORT INFORMATION
  Report Type: 
  Country: None (occurrence: None)
  Receive Date: 20120215
  Receipt Date: 20120203
  Transmission Date: 20120608
  Serious: Yes (Life-Threatening)
  Sender: FDA-Public Use
  Company Number: 1000023787

PATIENT
  Sex: Male
  Weight: 73 kg

DRUGS (2)
  1. MEMANTINE HYDROCHLORIDE [Suspect]
     Indication: ABNORMAL BEHAVIOUR
     Dosage: 10 MG (10 MG, 1 IN 1 D), ORAL
     Route: 048
     Dates: start: 20110701
  2. MEMANTINE HYDROCHLORIDE [Suspect]
     Indication: DEMENTIA
     Dosage: 10 MG (10 MG, 1 IN 1 D), ORAL
     Route: 048
     Dates: start: 20110701

REACTIONS (2)
  - CONSTIPATION [None]
  - FAECALOMA [None]
